FAERS Safety Report 13092601 (Version 1)
Quarter: 2017Q1

REPORT INFORMATION
  Report Type: Spontaneous
  Country: US (occurrence: US)
  Receive Date: 20170105
  Receipt Date: 20170105
  Transmission Date: 20170428
  Serious: Yes (Hospitalization)
  Sender: FDA-Public Use
  Company Number: None

PATIENT
  Age: 54 Year
  Sex: Female
  Weight: 46.2 kg

DRUGS (1)
  1. JARDIANCE [Suspect]
     Active Substance: EMPAGLIFLOZIN
     Indication: TYPE 2 DIABETES MELLITUS
     Route: 048

REACTIONS (7)
  - Asthenia [None]
  - Electrolyte imbalance [None]
  - Blood glucose increased [None]
  - Acute kidney injury [None]
  - Nausea [None]
  - Vomiting [None]
  - Diabetic ketoacidosis [None]

NARRATIVE: CASE EVENT DATE: 20170104
